FAERS Safety Report 9782652 (Version 4)
Quarter: 2014Q1

REPORT INFORMATION
  Report Type: Report from Study
  Country: US (occurrence: US)
  Receive Date: 20131226
  Receipt Date: 20140130
  Transmission Date: 20141002
  Serious: Yes (Hospitalization)
  Sender: FDA-Public Use
  Company Number: US-JNJFOC-20131212858

PATIENT
  Age: 17 Year
  Sex: Female
  Weight: 44.9 kg

DRUGS (8)
  1. REMICADE [Suspect]
     Indication: CROHN^S DISEASE
     Route: 042
     Dates: start: 20110427
  2. HUMIRA [Concomitant]
     Route: 065
     Dates: start: 20120614
  3. AZURETTE [Concomitant]
     Route: 065
  4. BUPROPION [Concomitant]
     Route: 065
  5. MULTIVITAMINS [Concomitant]
     Route: 065
  6. PROBIOTICS [Concomitant]
     Route: 065
  7. FLUOXETINE [Concomitant]
     Route: 065
  8. MELATONIN [Concomitant]
     Route: 065

REACTIONS (1)
  - Crohn^s disease [Recovered/Resolved]
